FAERS Safety Report 6027240-2 (Version None)
Quarter: 2008Q4

REPORT INFORMATION
  Report Type: 
  Country: None (occurrence: None)
  Receive Date: 20081222
  Receipt Date: 20081121
  Transmission Date: 20090506
  Serious: No
  Sender: FDA-Public Use
  Company Number: US-WYE-H06937208

PATIENT
  Age: 30 Year
  Sex: Male

DRUGS (4)
  1. PRISTIQ [Suspect]
     Indication: PANIC ATTACK
     Dosage: 50 MG 1X PER 1 DAY, ORAL
     Route: 048
     Dates: start: 20080909
  2. PRISTIQ [Suspect]
     Indication: SOCIAL PHOBIA
     Dosage: 50 MG 1X PER 1 DAY, ORAL
     Route: 048
     Dates: start: 20080909
  3. BUSPAR [Concomitant]
  4. TRAZODONE HCL [Concomitant]

REACTIONS (1)
  - PRURITUS GENITAL [None]
